FAERS Safety Report 12869959 (Version 2)
Quarter: 2016Q4

REPORT INFORMATION
  Report Type: Spontaneous
  Country: US (occurrence: US)
  Receive Date: 20161021
  Receipt Date: 20161122
  Transmission Date: 20170207
  Serious: No
  Sender: FDA-Public Use
  Company Number: US-GLAXOSMITHKLINE-US2016153359

PATIENT
  Age: 57 Year
  Sex: Male

DRUGS (1)
  1. VENTOLIN HFA [Suspect]
     Active Substance: ALBUTEROL SULFATE
     Indication: ASTHMA
     Dosage: 1 PUFF(S), 1D
     Route: 055

REACTIONS (4)
  - Oesophageal pain [Recovered/Resolved]
  - Respiratory tract irritation [Recovered/Resolved]
  - Product quality issue [Unknown]
  - Underdose [Unknown]

NARRATIVE: CASE EVENT DATE: 201607
